FAERS Safety Report 10196223 (Version 1)
Quarter: 2014Q2

REPORT INFORMATION
  Report Type: Spontaneous
  Country: US (occurrence: None)
  Receive Date: 20140522
  Receipt Date: 20140522
  Transmission Date: 20141212
  Serious: Yes (Other)
  Sender: FDA-Public Use
  Company Number: 2014SA060367

PATIENT
  Age: 42 Year
  Sex: Male

DRUGS (1)
  1. BENZOCAINE [Suspect]
     Indication: LOCAL ANAESTHESIA
     Dosage: UNKNOWN, UNKNOWN, UNKNOWN

REACTIONS (1)
  - Methaemoglobinaemia [None]
